FAERS Safety Report 24122119 (Version 1)
Quarter: 2024Q3

REPORT INFORMATION
  Report Type: Spontaneous
  Country: US (occurrence: US)
  Receive Date: 20240722
  Receipt Date: 20240722
  Transmission Date: 20241017
  Serious: No
  Sender: ABBVIE
  Company Number: US-ABBVIE-5845564

PATIENT
  Sex: Male
  Weight: 66 kg

DRUGS (2)
  1. RINVOQ [Suspect]
     Active Substance: UPADACITINIB
     Indication: Product used for unknown indication
     Route: 048
  2. DUPIXENT [Suspect]
     Active Substance: DUPILUMAB
     Indication: Dermatitis atopic
     Dosage: (STRENGTH: 300 M G/2 ML)     SINGLE DOSE PREFILLED PEN
     Route: 058
     Dates: start: 202211

REACTIONS (1)
  - Acne [Not Recovered/Not Resolved]
